FAERS Safety Report 24298703 (Version 1)
Quarter: 2024Q3

REPORT INFORMATION
  Report Type: Spontaneous
  Country: US (occurrence: US)
  Receive Date: 20240909
  Receipt Date: 20240909
  Transmission Date: 20241017
  Serious: Yes (Other)
  Sender: CHIESI
  Company Number: US-CHIESI-2023CHF05124

PATIENT

DRUGS (1)
  1. CLEVIPREX [Suspect]
     Active Substance: CLEVIDIPINE
     Indication: Blood pressure systolic
     Dosage: UNK
     Route: 042
     Dates: start: 202309, end: 202309

REACTIONS (1)
  - Ventilation perfusion mismatch [Recovered/Resolved]

NARRATIVE: CASE EVENT DATE: 20230930
